FAERS Safety Report 6752291-X (Version None)
Quarter: 2010Q2

REPORT INFORMATION
  Report Type: 
  Country: None (occurrence: None)
  Receive Date: 20100602
  Receipt Date: 20100526
  Transmission Date: 20101027
  Serious: Yes (Hospitalization, Other)
  Sender: FDA-Public Use
  Company Number: PHHO2010US06434

PATIENT
  Sex: Female
  Weight: 123 kg

DRUGS (5)
  1. STI571/CGP57148B T35717+TAB [Suspect]
     Indication: FALLOPIAN TUBE CANCER
     Dosage: 400 MG DAILY
     Route: 048
     Dates: start: 20100215, end: 20100228
  2. STI571/CGP57148B T35717+TAB [Suspect]
     Dosage: UNK
     Dates: start: 20100329, end: 20100411
  3. GEMZAR [Suspect]
     Indication: FALLOPIAN TUBE CANCER
     Dosage: UNK
     Route: 042
     Dates: start: 20100217
  4. GEMZAR [Suspect]
     Dosage: 1850MG
     Route: 042
     Dates: start: 20100331, end: 20100407
  5. LOVENOX [Concomitant]

REACTIONS (11)
  - ANAEMIA [None]
  - ASCITES [None]
  - CANDIDIASIS [None]
  - HYPOTENSION [None]
  - KLEBSIELLA INFECTION [None]
  - MALAISE [None]
  - PARACENTESIS [None]
  - PELVIC FLUID COLLECTION [None]
  - PYELONEPHRITIS ACUTE [None]
  - PYREXIA [None]
  - TACHYCARDIA [None]
